FAERS Safety Report 4869318-2 (Version None)
Quarter: 2005Q4

REPORT INFORMATION
  Report Type: 
  Country: None (occurrence: None)
  Receive Date: 20051228
  Receipt Date: 20051228
  Transmission Date: 20060501
  Serious: Yes (Life-Threatening, Hospitalization)
  Sender: FDA-Public Use
  Company Number: None

PATIENT
  Sex: Female
  Weight: 81.6475 kg

DRUGS (1)
  1. ORTHO EVRA [Suspect]
     Dosage: 1 PATCH 1 PATCH/WEEK TRANSDERMAL
     Dates: start: 20040401, end: 20040801

REACTIONS (1)
  - CEREBROVASCULAR ACCIDENT [None]
